FAERS Safety Report 25800033 (Version 1)
Quarter: 2025Q3

REPORT INFORMATION
  Report Type: Spontaneous
  Country: CN (occurrence: CN)
  Receive Date: 20250914
  Receipt Date: 20250914
  Transmission Date: 20251020
  Serious: Yes (Hospitalization)
  Sender: CHENGDU SUNCADIA MEDICINE CO., LTD.
  Company Number: CN-Chengdu Suncadia Medicine Co., Ltd.-2172895

PATIENT
  Age: 13 Year
  Sex: Male

DRUGS (4)
  1. TACROLIMUS [Suspect]
     Active Substance: TACROLIMUS
     Indication: Renal transplant
     Dates: start: 20241201, end: 20250225
  2. MYCOPHENOLATE SODIUM [Suspect]
     Active Substance: MYCOPHENOLATE SODIUM
     Dates: start: 20241201, end: 20250225
  3. WU ZHI [Concomitant]
     Dates: start: 20241201, end: 20250225
  4. METHYLPREDNISOLONE [Suspect]
     Active Substance: METHYLPREDNISOLONE
     Dates: start: 20241201, end: 20250225

REACTIONS (1)
  - Pneumonia [Recovering/Resolving]

NARRATIVE: CASE EVENT DATE: 20250210
